FAERS Safety Report 5467003-X (Version None)
Quarter: 2007Q3

REPORT INFORMATION
  Report Type: 
  Country: None (occurrence: None)
  Receive Date: 20070925
  Receipt Date: 20070917
  Transmission Date: 20080115
  Serious: Yes (Hospitalization)
  Sender: FDA-Public Use
  Company Number: A0682433A

PATIENT
  Age: 72 Year
  Sex: Female

DRUGS (4)
  1. COREG [Suspect]
     Dosage: 25MG TWICE PER DAY
     Route: 048
     Dates: start: 20061101
  2. COZAAR [Concomitant]
  3. ASPIRIN [Concomitant]
  4. ALLEGRA [Concomitant]

REACTIONS (6)
  - ASTHENIA [None]
  - BLOOD PRESSURE DECREASED [None]
  - DYSPNOEA [None]
  - FLATULENCE [None]
  - HYPERSENSITIVITY [None]
  - NASAL CONGESTION [None]
